FAERS Safety Report 9528492 (Version 4)
Quarter: 2014Q2

REPORT INFORMATION
  Report Type: Report from Study
  Country: US (occurrence: US)
  Receive Date: 20130917
  Receipt Date: 20140529
  Transmission Date: 20141212
  Serious: Yes (Hospitalization)
  Sender: FDA-Public Use
  Company Number: US-SANOFI-AVENTIS-2013SA091426

PATIENT
  Age: 70 Year
  Sex: Male
  Weight: 103 kg

DRUGS (10)
  1. CABAZITAXEL [Suspect]
     Indication: PROSTATE CANCER
     Route: 042
     Dates: start: 20130516, end: 20130718
  2. ANTINEOPLASTIC AGENTS [Suspect]
     Indication: PROSTATE CANCER
     Route: 042
     Dates: start: 20130507, end: 20130801
  3. ATENOLOL [Concomitant]
     Route: 048
     Dates: start: 20121016
  4. CALCIUM [Concomitant]
     Route: 048
     Dates: start: 20130109
  5. CEPHALEXIN [Concomitant]
     Route: 048
     Dates: start: 20130612
  6. DICLOXACILLIN SODIUM MONOHYDRATE [Concomitant]
     Route: 048
     Dates: start: 20130618
  7. LUPRON [Concomitant]
     Dosage: EVERY 12 WEEKS
     Route: 030
     Dates: start: 20120720
  8. MUPIROCIN [Concomitant]
     Dosage: 2-3 PER DAY
     Route: 061
     Dates: start: 20130612
  9. VITAMIN D3 [Concomitant]
     Dosage: 3500 IU PER DAY, 6000 PER DAY
     Route: 048
     Dates: start: 20100922
  10. XGEVA [Concomitant]
     Dosage: 120MG/1.7 ML IN 12 WEEK
     Route: 058

REACTIONS (7)
  - Deep vein thrombosis [Recovered/Resolved]
  - Pulmonary embolism [Recovered/Resolved]
  - Gastroenteritis [Recovered/Resolved]
  - Nausea [Recovered/Resolved]
  - Vomiting [Recovered/Resolved]
  - Dehydration [Recovered/Resolved]
  - Pyrexia [Recovered/Resolved]
